FAERS Safety Report 5503661-9 (Version None)
Quarter: 2007Q4

REPORT INFORMATION
  Report Type: 
  Country: None (occurrence: None)
  Receive Date: 20071101
  Receipt Date: 20071024
  Transmission Date: 20080405
  Serious: Yes (Other)
  Sender: FDA-Public Use
  Company Number: PHBS2007GR17866

PATIENT
  Age: 42 Year
  Sex: Female

DRUGS (1)
  1. LAMISIL [Suspect]
     Indication: ONYCHOMYCOSIS
     Route: 065
     Dates: start: 20070912

REACTIONS (2)
  - ARRHYTHMIA [None]
  - STOMACH DISCOMFORT [None]
